FAERS Safety Report 9025482 (Version 2)
Quarter: 2013Q1

REPORT INFORMATION
  Report Type: Spontaneous
  Country: JP (occurrence: JP)
  Receive Date: 20130122
  Receipt Date: 20130122
  Transmission Date: 20140127
  Serious: Yes (Other)
  Sender: FDA-Public Use
  Company Number: JP-PFIZER INC-2012322049

PATIENT
  Sex: Male

DRUGS (1)
  1. SOLANAX [Suspect]
     Indication: INSOMNIA
     Dosage: 0.1 MG (A QUARTER OF 0.4 MG TABLET), UNK
     Route: 048
     Dates: start: 2012

REACTIONS (2)
  - Brain natriuretic peptide increased [Unknown]
  - Dyspnoea [Unknown]
